FAERS Safety Report 6428988-8 (Version None)
Quarter: 2009Q4

REPORT INFORMATION
  Report Type: 
  Country: None (occurrence: None)
  Receive Date: 20091102
  Receipt Date: 20091020
  Transmission Date: 20100525
  Serious: Yes (Other)
  Sender: FDA-Public Use
  Company Number: 232186J09USA

PATIENT
  Age: 53 Year
  Sex: Female

DRUGS (5)
  1. REBIF [Suspect]
     Indication: MULTIPLE SCLEROSIS
     Dosage: 44 MCG, 3 IN 1 WEEKS, SUBCUTANEOUS
     Route: 058
     Dates: start: 20090603
  2. FLU SHOT (INFLUENZA VIRUS VACCINE POLYVALENT) [Concomitant]
  3. CELEXA [Concomitant]
  4. MOBIC [Concomitant]
  5. TYLENOL [Concomitant]

REACTIONS (5)
  - FATIGUE [None]
  - INJECTION SITE ERYTHEMA [None]
  - MALIGNANT MELANOMA [None]
  - MUSCLE SPASMS [None]
  - PYREXIA [None]
